FAERS Safety Report 9636706 (Version 2)
Quarter: 2013Q4

REPORT INFORMATION
  Report Type: Report from Study
  Country: FR (occurrence: FR)
  Receive Date: 20131021
  Receipt Date: 20131029
  Transmission Date: 20140711
  Serious: Yes (Death)
  Sender: FDA-Public Use
  Company Number: FR-ROCHE-1292078

PATIENT
  Age: 84 Year
  Sex: Male
  Weight: 70 kg

DRUGS (2)
  1. ZELBORAF [Suspect]
     Indication: METASTATIC MALIGNANT MELANOMA
     Route: 048
  2. ZELBORAF [Suspect]
     Route: 048
     Dates: start: 20130412

REACTIONS (3)
  - Disease progression [Fatal]
  - Diarrhoea [Unknown]
  - Gamma-glutamyltransferase increased [Recovering/Resolving]
